FAERS Safety Report 8594521-8 (Version None)
Quarter: 2012Q3

REPORT INFORMATION
  Report Type: 
  Country: None (occurrence: None)
  Receive Date: 20120801
  Receipt Date: 20120723
  Transmission Date: 20120928
  Serious: Yes (Other)
  Sender: FDA-Public Use
  Company Number: ENTC2012-0334

PATIENT
  Age: 62 Year
  Sex: Male

DRUGS (3)
  1. AZILECT [Suspect]
     Indication: PARKINSON'S DISEASE
     Dosage: 1 DF, DAILY ORAL
     Route: 048
     Dates: start: 20111201
  2. STALEVO 50 [Suspect]
     Indication: PARKINSON'S DISEASE
     Dosage: 3 DF, DAILY; STRENGTH: 100/25/200 MG ORAL
     Route: 048
     Dates: start: 20080101
  3. PRAMIPEXOLE DIHYDROCHLORIDE [Suspect]
     Indication: PARKINSON'S DISEASE
     Dosage: 4 DF, DAILY; STRENGTH: 0.7 MG ; 3 DF, DAILY; STRENGTH: 0.7 MG
     Dates: start: 20080101

REACTIONS (3)
  - HYPERSEXUALITY [None]
  - DRUG INTERACTION [None]
  - PATHOLOGICAL GAMBLING [None]
